FAERS Safety Report 13778898 (Version 2)
Quarter: 2017Q3

REPORT INFORMATION
  Report Type: Spontaneous
  Country: US (occurrence: US)
  Receive Date: 20170721
  Receipt Date: 20170904
  Transmission Date: 20171127
  Serious: No
  Sender: FDA-Public Use
  Company Number: US-PFIZER INC-2017314054

PATIENT
  Age: 59 Year
  Sex: Female

DRUGS (2)
  1. LETROZOLE. [Suspect]
     Active Substance: LETROZOLE
     Dosage: UNK
  2. IBRANCE [Suspect]
     Active Substance: PALBOCICLIB
     Indication: BREAST CANCER FEMALE
     Dosage: 125 MG, 1 DF, CYCLIC (1 CAPSULE DAILY FOR 21 DAYS, FOLLOWED BY 7 DAYS OFF, EVERY 28 DAYS)
     Route: 048
     Dates: start: 201611

REACTIONS (4)
  - Rhinorrhoea [Unknown]
  - Lacrimation increased [Unknown]
  - Migraine [Recovered/Resolved]
  - Toothache [Unknown]

NARRATIVE: CASE EVENT DATE: 201705
